FAERS Safety Report 7410344-7 (Version None)
Quarter: 2011Q2

REPORT INFORMATION
  Report Type: 
  Country: None (occurrence: None)
  Receive Date: 20110412
  Receipt Date: 20110331
  Transmission Date: 20111010
  Serious: Yes (Other)
  Sender: FDA-Public Use
  Company Number: FR-GENENTECH-310444

PATIENT
  Sex: Male
  Weight: 47 kg

DRUGS (1)
  1. SOMATROPIN [Suspect]
     Indication: GROWTH HORMONE DEFICIENCY
     Dosage: 0.035 MG/KG, QD
     Route: 058
     Dates: start: 20100416

REACTIONS (1)
  - COAGULATION FACTOR DECREASED [None]
